FAERS Safety Report 8348749-2 (Version None)
Quarter: 2012Q2

REPORT INFORMATION
  Report Type: 
  Country: None (occurrence: None)
  Receive Date: 20120510
  Receipt Date: 20120504
  Transmission Date: 20120825
  Serious: No
  Sender: FDA-Public Use
  Company Number: US-PFIZER INC-2012110560

PATIENT
  Sex: Female
  Weight: 91 kg

DRUGS (6)
  1. NEURONTIN [Suspect]
     Indication: ALOPECIA
  2. NEURONTIN [Suspect]
     Indication: MIGRAINE
  3. ELAVIL [Concomitant]
     Dosage: UNK
  4. LIPITOR [Suspect]
     Indication: BLOOD CHOLESTEROL INCREASED
     Dosage: 10 MG, 1X/DAY
     Route: 048
     Dates: start: 20120401, end: 20120401
  5. NEURONTIN [Suspect]
     Indication: CONVULSION
     Dosage: 800 MG, 3X/DAY
     Route: 048
  6. NEURONTIN [Suspect]
     Indication: HEADACHE
     Dosage: UNK
     Route: 048

REACTIONS (3)
  - MYALGIA [None]
  - MUSCLE SPASMS [None]
  - MUSCULAR WEAKNESS [None]
